FAERS Safety Report 13157462 (Version 2)
Quarter: 2017Q1

REPORT INFORMATION
  Report Type: Spontaneous
  Country: IN (occurrence: IN)
  Receive Date: 20170127
  Receipt Date: 20170130
  Transmission Date: 20170428
  Serious: Yes (Other)
  Sender: FDA-Public Use
  Company Number: IN-LUPIN PHARMACEUTICALS INC.-E2B_00007166

PATIENT
  Age: 11 Month
  Sex: Male

DRUGS (3)
  1. IMOL [Concomitant]
     Indication: PYREXIA
     Route: 048
     Dates: start: 20170109
  2. L-CIN SYRUP [Suspect]
     Active Substance: LEVOFLOXACIN
     Indication: PYREXIA
     Route: 048
     Dates: start: 20170109, end: 20170109
  3. L-CIN SYRUP [Suspect]
     Active Substance: LEVOFLOXACIN
     Route: 048
     Dates: start: 20170111, end: 20170111

REACTIONS (3)
  - Haematochezia [Recovering/Resolving]
  - Product use issue [Unknown]
  - Diarrhoea [Recovering/Resolving]

NARRATIVE: CASE EVENT DATE: 20170109
